FAERS Safety Report 6264942-7 (Version None)
Quarter: 2009Q3

REPORT INFORMATION
  Report Type: 
  Country: None (occurrence: None)
  Receive Date: 20090709
  Receipt Date: 20090709
  Transmission Date: 20100115
  Serious: Yes (Hospitalization)
  Sender: FDA-Public Use
  Company Number: None

PATIENT
  Age: 62 Year
  Sex: Male
  Weight: 63.5036 kg

DRUGS (1)
  1. CRESTOR [Suspect]
     Dosage: 20MG 1 X DAY
     Dates: start: 20090201, end: 20090604

REACTIONS (4)
  - CEREBROVASCULAR ACCIDENT [None]
  - MUSCLE ATROPHY [None]
  - TREMOR [None]
  - WALKING AID USER [None]
